FAERS Safety Report 19799152 (Version 12)
Quarter: 2022Q2

REPORT INFORMATION
  Report Type: Report from Study
  Country: US (occurrence: None)
  Receive Date: 20210907
  Receipt Date: 20220427
  Transmission Date: 20220721
  Serious: Yes (Hospitalization)
  Sender: FDA-Public Use
  Company Number: US-ROCHE-2901956

PATIENT
  Age: 46 Year
  Sex: Female
  Weight: 69.5 kg

DRUGS (23)
  1. AUTOGENE CEVUMERAN [Suspect]
     Active Substance: AUTOGENE CEVUMERAN
     Indication: Metastatic neoplasm
     Dosage: MOST RECENT DOSE OF RO719845 WAS ADMIN ON 11/MAR/2021 (25 MG)PRIOR TO AE/SAE
     Route: 042
     Dates: start: 20190821
  2. ATEZOLIZUMAB [Suspect]
     Active Substance: ATEZOLIZUMAB
     Indication: Metastatic neoplasm
     Dosage: THE MOST RECENT DOSE OF ATEZOLIZUMAB 1200 MG WAS ON 18/AUG/2021 PRIOR TO AE AND SAE
     Route: 042
     Dates: start: 20190731
  3. AMLODIPINE [Concomitant]
     Active Substance: AMLODIPINE BESYLATE
     Indication: Hypertension
     Route: 048
     Dates: start: 201409
  4. POTASSIUM CHLORIDE [Concomitant]
     Active Substance: POTASSIUM CHLORIDE
     Indication: Hypokalaemia
     Dosage: MEDICATION DOSE:  20 OTHER
     Route: 048
     Dates: start: 20161108
  5. POTASSIUM CHLORIDE [Concomitant]
     Active Substance: POTASSIUM CHLORIDE
     Indication: Muscle spasms
  6. ACETAMINOPHEN [Concomitant]
     Active Substance: ACETAMINOPHEN
     Indication: Headache
     Route: 048
     Dates: start: 20190814, end: 20190814
  7. ACETAMINOPHEN [Concomitant]
     Active Substance: ACETAMINOPHEN
     Route: 048
     Dates: start: 20211223, end: 20211223
  8. CHOLECALCIFEROL [Concomitant]
     Active Substance: CHOLECALCIFEROL
     Indication: Nutritional supplementation
     Dosage: MEDICATION DOSE: 1000 IU
     Route: 048
     Dates: start: 20200114
  9. ONDANSETRON [Concomitant]
     Active Substance: ONDANSETRON
     Indication: Enterocolitis
     Route: 042
     Dates: start: 20210727, end: 20210727
  10. ONDANSETRON [Concomitant]
     Active Substance: ONDANSETRON
     Indication: Infusion related reaction
     Route: 042
     Dates: start: 20211223, end: 20211223
  11. SODIUM CHLORIDE [Concomitant]
     Active Substance: SODIUM CHLORIDE
     Indication: Enterocolitis
     Route: 042
     Dates: start: 20210727, end: 20210727
  12. SODIUM CHLORIDE [Concomitant]
     Active Substance: SODIUM CHLORIDE
     Route: 042
     Dates: start: 20211223, end: 20211223
  13. BISMUTH SUBSALICYLATE [Concomitant]
     Active Substance: BISMUTH SUBSALICYLATE
     Indication: Enterocolitis
     Dates: start: 20210724, end: 20210727
  14. ATORVASTATIN [Concomitant]
     Active Substance: ATORVASTATIN
     Indication: Troponin increased
     Route: 048
     Dates: start: 20210828, end: 20210830
  15. BACTRIM DS [Concomitant]
     Active Substance: SULFAMETHOXAZOLE\TRIMETHOPRIM
     Route: 048
     Dates: start: 20210828, end: 20211129
  16. LEVOFLOXACIN [Concomitant]
     Active Substance: LEVOFLOXACIN
     Route: 048
     Dates: start: 20210828, end: 20210906
  17. OMEPRAZOLE [Concomitant]
     Active Substance: OMEPRAZOLE
     Route: 048
     Dates: start: 20210828
  18. ENOXAPARIN [Concomitant]
     Active Substance: ENOXAPARIN
     Dates: start: 20210827, end: 20210830
  19. SENNA [Concomitant]
     Active Substance: SENNA LEAF\SENNOSIDES\SENNOSIDES A AND B
     Route: 048
     Dates: start: 20210829, end: 20210829
  20. ZOLPIDEM [Concomitant]
     Active Substance: ZOLPIDEM TARTRATE
     Indication: Insomnia
     Route: 048
     Dates: start: 202109
  21. DIPHENHYDRAMINE [Concomitant]
     Active Substance: DIPHENHYDRAMINE
     Route: 042
     Dates: start: 20211223, end: 20211223
  22. FAMOTIDINE [Concomitant]
     Active Substance: FAMOTIDINE
     Route: 042
     Dates: start: 20211223, end: 20211223
  23. MEPERIDINE [Concomitant]
     Active Substance: MEPERIDINE
     Indication: Infusion related reaction
     Route: 042
     Dates: start: 20211223, end: 20211223

REACTIONS (2)
  - Chest pain [Recovered/Resolved]
  - Immune-mediated lung disease [Not Recovered/Not Resolved]

NARRATIVE: CASE EVENT DATE: 20210826
